FAERS Safety Report 10783782 (Version 1)
Quarter: 2015Q1

REPORT INFORMATION
  Report Type: Spontaneous
  Country: US (occurrence: US)
  Receive Date: 20150210
  Receipt Date: 20150210
  Transmission Date: 20150721
  Serious: Yes (Other)
  Sender: FDA-Public Use
  Company Number: US-ACTAVIS-2015-01996

PATIENT
  Age: 55 Year
  Sex: Female

DRUGS (3)
  1. PROGESTERONE (IN SESAME OIL) (WATSON LABORATORIES) [Suspect]
     Active Substance: PROGESTERONE
     Indication: MENOPAUSAL SYMPTOMS
     Dosage: 150 MG, UNKNOWN
     Route: 048
  2. ESTRADIOL (WATSON LABORATORIES) [Suspect]
     Active Substance: ESTRADIOL
     Indication: MENOPAUSAL SYMPTOMS
     Dosage: 1 MG, UNKNOWN
     Route: 048
  3. PRASTERONE [Suspect]
     Active Substance: PRASTERONE
     Indication: MENOPAUSAL SYMPTOMS
     Dosage: 5 MG, UNKNOWN
     Route: 048

REACTIONS (1)
  - Endometrial adenocarcinoma [Unknown]
